FAERS Safety Report 6315615-3 (Version None)
Quarter: 2009Q3

REPORT INFORMATION
  Report Type: 
  Country: None (occurrence: None)
  Receive Date: 20090818
  Receipt Date: 20090807
  Transmission Date: 20100115
  Serious: Yes (Other)
  Sender: FDA-Public Use
  Company Number: 8049192

PATIENT
  Age: 29 Year
  Sex: Female
  Weight: 90 kg

DRUGS (6)
  1. KEPPRA [Suspect]
     Dosage: 1000 MG ONCE PO
     Route: 048
     Dates: start: 20090715, end: 20090715
  2. APONAL [Suspect]
     Dosage: 500 MG ONCE PO
     Route: 048
     Dates: start: 20090715, end: 20090715
  3. FLUANXOL /00109702/ [Suspect]
     Dosage: 50 MG ONCE PO
     Route: 048
     Dates: start: 20090715, end: 20090715
  4. NEUROCIL /00038602/ [Suspect]
     Dosage: 500 MG ONCE PO
     Route: 048
     Dates: start: 20090715, end: 20090715
  5. LORAZEPAM [Suspect]
     Dosage: 10 MG ONCE PO
     Route: 048
     Dates: start: 20090715, end: 20090715
  6. VALPROIC ACID [Suspect]
     Dosage: 3000 MG ONCE PO
     Route: 048
     Dates: start: 20090715, end: 20090715

REACTIONS (5)
  - DEPRESSED LEVEL OF CONSCIOUSNESS [None]
  - DIZZINESS [None]
  - NAUSEA [None]
  - SUICIDE ATTEMPT [None]
  - TACHYCARDIA [None]
